FAERS Safety Report 5036047-4 (Version None)
Quarter: 2006Q2

REPORT INFORMATION
  Report Type: 
  Country: None (occurrence: None)
  Receive Date: 20060526
  Receipt Date: 20060322
  Transmission Date: 20061013
  Serious: No
  Sender: FDA-Public Use
  Company Number: 223317

PATIENT
  Age: 43 Year
  Sex: Male

DRUGS (1)
  1. RAPTIVA [Suspect]
     Indication: GUTTATE PSORIASIS
     Dosage: 64 ML, SUBCUTANEOUS
     Route: 058
     Dates: start: 20060206, end: 20060210

REACTIONS (1)
  - HEADACHE [None]
